FAERS Safety Report 4771115-3 (Version None)
Quarter: 2005Q3

REPORT INFORMATION
  Report Type: 
  Country: None (occurrence: None)
  Receive Date: 20050914
  Receipt Date: 20050902
  Transmission Date: 20060218
  Serious: Yes (Other)
  Sender: FDA-Public Use
  Company Number: 2005124302

PATIENT
  Age: 82 Year
  Sex: Male

DRUGS (7)
  1. ZITHROMAX [Suspect]
     Indication: PULMONARY CONGESTION
     Dosage: 500 MG (250 MG), ORAL
     Route: 048
     Dates: start: 20050902
  2. DIFLUCAN [Suspect]
     Indication: CANDIDIASIS
     Dates: start: 20050825, end: 20050831
  3. COUMADIN [Concomitant]
  4. PROTONIX [Concomitant]
  5. LEXAPRO [Concomitant]
  6. UNKNOWN BLOOD PRESSURE MEDICATION (DRUG, UNNSPECIFIED) [Concomitant]
  7. PERCOCET [Concomitant]

REACTIONS (3)
  - MUSCLE SPASMS [None]
  - PULMONARY CONGESTION [None]
  - WEIGHT DECREASED [None]
